FAERS Safety Report 18589656 (Version 2)
Quarter: 2021Q1

REPORT INFORMATION
  Report Type: Spontaneous
  Country: JP (occurrence: JP)
  Receive Date: 20201208
  Receipt Date: 20210104
  Transmission Date: 20210419
  Serious: Yes (Hospitalization, Other)
  Sender: FDA-Public Use
  Company Number: NVSJ2020JP013093

PATIENT
  Age: 55 Year
  Sex: Male
  Weight: 115 kg

DRUGS (8)
  1. TALION [Concomitant]
     Indication: PRODUCT USED FOR UNKNOWN INDICATION
     Dosage: 1 DF
     Route: 065
  2. EQUMET [Suspect]
     Active Substance: METFORMIN HYDROCHLORIDE\VILDAGLIPTIN
     Indication: TYPE 2 DIABETES MELLITUS
     Dosage: 1 DF, METFORMIN UNKNOWN/VILDAGLIPTIN50MG  BID
     Route: 048
  3. TOPILORIC [Concomitant]
     Active Substance: TOPIROXOSTAT
     Indication: PRODUCT USED FOR UNKNOWN INDICATION
     Dosage: 1 DF, BID
     Route: 065
  4. METFORMIN HYDROCHLORIDE. [Concomitant]
     Active Substance: METFORMIN HYDROCHLORIDE
     Indication: PRODUCT USED FOR UNKNOWN INDICATION
     Dosage: 1 DF, QD
     Route: 065
  5. AZILVA [Concomitant]
     Active Substance: AZILSARTAN KAMEDOXOMIL
     Indication: PRODUCT USED FOR UNKNOWN INDICATION
     Dosage: 1 DF
     Route: 065
  6. XARELTO [Concomitant]
     Active Substance: RIVAROXABAN
     Indication: PRODUCT USED FOR UNKNOWN INDICATION
     Dosage: 1 DF
     Route: 065
  7. SUREPOST [Concomitant]
     Active Substance: REPAGLINIDE
     Indication: PRODUCT USED FOR UNKNOWN INDICATION
     Dosage: 1 DF, TID
     Route: 065
  8. NIFEDIPINE. [Concomitant]
     Active Substance: NIFEDIPINE
     Indication: PRODUCT USED FOR UNKNOWN INDICATION
     Dosage: 1 DF
     Route: 065

REACTIONS (13)
  - Malaise [Unknown]
  - Nephropathy [Unknown]
  - Pyrexia [Unknown]
  - Cellulitis [Unknown]
  - Sensory disturbance [Unknown]
  - Nervous system disorder [Unknown]
  - Decreased appetite [Unknown]
  - Erythema [Unknown]
  - Arteriosclerosis [Unknown]
  - Nausea [Unknown]
  - Feeling hot [Unknown]
  - Diabetic gangrene [Unknown]
  - Pyrexia [Recovered/Resolved]
